FAERS Safety Report 8476964-6 (Version None)
Quarter: 2012Q2

REPORT INFORMATION
  Report Type: 
  Country: None (occurrence: None)
  Receive Date: 20120629
  Receipt Date: 20120625
  Transmission Date: 20120825
  Serious: No
  Sender: FDA-Public Use
  Company Number: US-BIOGENIDEC-2012BI022448

PATIENT
  Sex: Female

DRUGS (2)
  1. TYSABRI [Suspect]
     Indication: MULTIPLE SCLEROSIS
     Route: 042
     Dates: start: 20080626, end: 20100625
  2. TYSABRI [Suspect]
     Route: 042
     Dates: start: 20111020

REACTIONS (3)
  - PAIN [None]
  - MUSCULOSKELETAL PAIN [None]
  - NAUSEA [None]
